FAERS Safety Report 5778168-4 (Version None)
Quarter: 2008Q2

REPORT INFORMATION
  Report Type: 
  Country: None (occurrence: None)
  Receive Date: 20080619
  Receipt Date: 20080515
  Transmission Date: 20081010
  Serious: No
  Sender: FDA-Public Use
  Company Number: US-BAYER-200814503NA

PATIENT
  Age: 18 Year
  Sex: Female
  Weight: 73 kg

DRUGS (4)
  1. YAZ [Suspect]
     Indication: MENSTRUATION IRREGULAR
     Route: 048
     Dates: start: 20071101
  2. METFORMIN [Concomitant]
     Dates: start: 20070201
  3. ABILIFY [Concomitant]
     Dates: start: 20070101
  4. ATARAL [Concomitant]

REACTIONS (2)
  - DYSPNOEA [None]
  - TACHYCARDIA [None]
